FAERS Safety Report 15499602 (Version 2)
Quarter: 2018Q4

REPORT INFORMATION
  Report Type: Spontaneous
  Country: FR (occurrence: FR)
  Receive Date: 20181015
  Receipt Date: 20181017
  Transmission Date: 20190205
  Serious: Yes (Other)
  Sender: FDA-Public Use
  Company Number: FR-BAYER-2018-187587

PATIENT
  Age: 34 Year
  Sex: Female
  Weight: 64 kg

DRUGS (1)
  1. MIRENA [Suspect]
     Active Substance: LEVONORGESTREL
     Indication: CONTRACEPTION
     Dosage: 20 MCG/24HR, CONT
     Route: 015

REACTIONS (5)
  - Hepatocellular injury [Unknown]
  - Headache [Unknown]
  - Abnormal behaviour [Unknown]
  - Abdominal pain [Unknown]
  - Generalised anxiety disorder [Unknown]

NARRATIVE: CASE EVENT DATE: 201707
